FAERS Safety Report 8836675 (Version 2)
Quarter: 2013Q1

REPORT INFORMATION
  Report Type: Spontaneous
  Country: FR (occurrence: None)
  Receive Date: 20121010
  Receipt Date: 20121031
  Transmission Date: 20140127
  Serious: No
  Sender: FDA-Public Use
  Company Number: TPA2012A07665

PATIENT
  Age: 68 Year
  Sex: Male

DRUGS (12)
  1. ADENURIC (FEBUXOSTAT) [Suspect]
     Indication: PRODUCT USED FOR UNKNOWN INDICATION
     Route: 048
     Dates: start: 20120411
  2. COLCHICINE (COLCHICINE) [Concomitant]
  3. PLAVIX (CLOPIDOGREL BISULFATE) [Concomitant]
  4. COZAAR (LOSARTAN POTASSIUM) [Concomitant]
  5. GLUCOPHAGE (METFORMIN HYDROCHLORIDE) [Concomitant]
  6. AMAREL (GLIMEPIRIDE) [Concomitant]
  7. XELEVIA (SITAGLIPTIN PHOSPHATE) [Concomitant]
  8. TAHOR (ATORVASTATIN CALCIUM) [Concomitant]
  9. TENORMINE (ATENOLOL) [Concomitant]
  10. PARIET (RABEPRAZOLE SODIUM) [Concomitant]
  11. MECIR (TAMSULOSIN HYDROCHLORIDE) [Concomitant]
  12. PERMIXON (SERENOA REPENS EXTRACT) [Concomitant]

REACTIONS (1)
  - Hepatitis [None]
